FAERS Safety Report 18617819 (Version 5)
Quarter: 2021Q1

REPORT INFORMATION
  Report Type: Report from Study
  Country: US (occurrence: US)
  Receive Date: 20201215
  Receipt Date: 20210306
  Transmission Date: 20210419
  Serious: Yes (Life-Threatening)
  Sender: FDA-Public Use
  Company Number: NVSC2020US326819

PATIENT
  Age: 67 Year
  Sex: Male
  Weight: 75.75 kg

DRUGS (3)
  1. LASIX [Concomitant]
     Active Substance: FUROSEMIDE
     Indication: PRODUCT USED FOR UNKNOWN INDICATION
     Dosage: UNK UNK, UNKNOWN
     Route: 065
     Dates: start: 20201207
  2. ENTRESTO [Suspect]
     Active Substance: SACUBITRIL\VALSARTAN
     Indication: CARDIAC FAILURE CONGESTIVE
     Dosage: 1 DF (24/26 MG), BID
     Route: 048
     Dates: start: 20201105
  3. ENTRESTO [Suspect]
     Active Substance: SACUBITRIL\VALSARTAN
     Dosage: 1 DF (24/26 MG), BID  (HALF TABLET)
     Route: 048
     Dates: start: 20201201, end: 20210102

REACTIONS (9)
  - Eye swelling [Recovered/Resolved]
  - Cough [Recovering/Resolving]
  - Wrong technique in product usage process [Unknown]
  - Swelling face [Recovered/Resolved]
  - Angioedema [Recovering/Resolving]
  - Hypotension [Recovering/Resolving]
  - Dyspnoea [Unknown]
  - Peripheral swelling [Unknown]
  - Sinus headache [Recovering/Resolving]

NARRATIVE: CASE EVENT DATE: 20201201
